FAERS Safety Report 21317867 (Version 2)
Quarter: 2022Q3

REPORT INFORMATION
  Report Type: Spontaneous
  Country: US (occurrence: US)
  Receive Date: 20220911
  Receipt Date: 20220923
  Transmission Date: 20221027
  Serious: No
  Sender: FDA-Public Use
  Company Number: US-SA-SAC20220826001114

PATIENT
  Sex: Female

DRUGS (1)
  1. DUPIXENT [Suspect]
     Active Substance: DUPILUMAB
     Indication: Multiple sclerosis
     Dosage: UNK UNK, Q4W
     Route: 058

REACTIONS (5)
  - Pruritus [Unknown]
  - Insomnia [Unknown]
  - Skin exfoliation [Unknown]
  - Skin fissures [Unknown]
  - Product use in unapproved indication [Unknown]
